FAERS Safety Report 23211026 (Version 1)
Quarter: 2023Q4

REPORT INFORMATION
  Report Type: Spontaneous
  Country: CN (occurrence: CN)
  Receive Date: 20231121
  Receipt Date: 20231121
  Transmission Date: 20240110
  Serious: Yes (Other)
  Sender: FDA-Public Use
  Company Number: CN-AMNEAL PHARMACEUTICALS-2023-AMRX-04022

PATIENT
  Age: 68 Year
  Sex: Female

DRUGS (4)
  1. FULVESTRANT [Suspect]
     Active Substance: FULVESTRANT
     Indication: Breast cancer
     Dosage: 0.5 G
     Route: 030
  2. FULVESTRANT [Suspect]
     Active Substance: FULVESTRANT
     Indication: Metastases to lung
  3. PALBOCICLIB [Suspect]
     Active Substance: PALBOCICLIB
     Indication: Breast cancer
     Dosage: 75 MG , 1 /DAY FOR 21 DAY WITH A 7 DAY INTERVAL
     Route: 065
  4. PALBOCICLIB [Suspect]
     Active Substance: PALBOCICLIB
     Indication: Metastases to lung

REACTIONS (1)
  - Cardiac failure chronic [Recovering/Resolving]
